FAERS Safety Report 7657613-3 (Version None)
Quarter: 2011Q3

REPORT INFORMATION
  Report Type: 
  Country: None (occurrence: None)
  Receive Date: 20110804
  Receipt Date: 20110728
  Transmission Date: 20111222
  Serious: Yes (Death, Other)
  Sender: FDA-Public Use
  Company Number: US-GILEAD-2011-0042069

PATIENT
  Sex: Male

DRUGS (25)
  1. ADVAIR DISKUS 100/50 [Concomitant]
  2. ALBUTEROL SULFATE AUTOHALER [Concomitant]
  3. LEXAPRO [Concomitant]
  4. LETAIRIS [Suspect]
     Indication: CARDIAC VALVE DISEASE
  5. LASIX [Concomitant]
  6. SPIRIVA [Concomitant]
  7. LETAIRIS [Suspect]
     Indication: PULMONARY HYPERTENSION
     Route: 048
     Dates: start: 20110504
  8. LETAIRIS [Suspect]
     Indication: CARDIAC DISORDER
  9. ISOSORBIDE MONONITRATE [Concomitant]
  10. ASPIRIN [Concomitant]
  11. LORAZEPAM [Concomitant]
  12. HYDROCODONE BITARTRATE AND ACETAMINOPHEN [Concomitant]
  13. TUSSIONEX [Concomitant]
  14. LETAIRIS [Suspect]
     Indication: LEFT ATRIAL DILATATION
  15. COUMADIN [Concomitant]
  16. LISINOPRIL [Concomitant]
  17. VITAMIN D [Concomitant]
  18. REQUIP [Concomitant]
  19. TYLENOL-500 [Concomitant]
  20. DIGOXIN [Concomitant]
  21. COREG [Concomitant]
  22. OXYGEN [Concomitant]
  23. LETAIRIS [Suspect]
     Indication: LUNG DISORDER
  24. ATORVASTATIN CALCIUM [Concomitant]
  25. MYLANTA [Concomitant]

REACTIONS (3)
  - DEATH [None]
  - DRUG INEFFECTIVE [None]
  - OEDEMA [None]
